FAERS Safety Report 8421322-3 (Version None)
Quarter: 2012Q2

REPORT INFORMATION
  Report Type: 
  Country: None (occurrence: None)
  Receive Date: 20120608
  Receipt Date: 20120604
  Transmission Date: 20120825
  Serious: Yes (Other)
  Sender: FDA-Public Use
  Company Number: PHHY2012TR048615

PATIENT
  Sex: Male

DRUGS (1)
  1. SANDOSTATIN LAR [Suspect]
     Indication: RECTAL CANCER
     Dosage: 30 MG, ONCE IN EVERY 28 DAYS

REACTIONS (1)
  - CARDIAC DISORDER [None]
